FAERS Safety Report 8356020-8 (Version None)
Quarter: 2012Q2

REPORT INFORMATION
  Report Type: 
  Country: None (occurrence: None)
  Receive Date: 20120514
  Receipt Date: 20120502
  Transmission Date: 20120825
  Serious: Yes (Other)
  Sender: FDA-Public Use
  Company Number: US-JNJFOC-20120503775

PATIENT
  Sex: Female
  Weight: 60.78 kg

DRUGS (3)
  1. METHOTREXATE [Concomitant]
     Indication: RHEUMATOID ARTHRITIS
     Route: 065
     Dates: start: 20020101
  2. REMICADE [Suspect]
     Indication: RHEUMATOID ARTHRITIS
     Route: 042
  3. EVISTA [Concomitant]
     Indication: RHEUMATOID ARTHRITIS
     Route: 048
     Dates: start: 20020101

REACTIONS (7)
  - BLOOD PRESSURE INCREASED [None]
  - STRESS FRACTURE [None]
  - FALL [None]
  - TACHYCARDIA [None]
  - BLOOD CHOLESTEROL INCREASED [None]
  - CONTUSION [None]
  - ARTHRALGIA [None]
